FAERS Safety Report 8173759-8 (Version None)
Quarter: 2012Q1

REPORT INFORMATION
  Report Type: 
  Country: None (occurrence: None)
  Receive Date: 20120224
  Receipt Date: 20120214
  Transmission Date: 20120608
  Serious: Yes (Other)
  Sender: FDA-Public Use
  Company Number: 1000026661

PATIENT
  Age: 55 Year
  Sex: Female

DRUGS (7)
  1. SAVELLA [Suspect]
     Indication: FIBROMYALGIA
     Dosage: 12.5 MG BID (12.5 MG,2 IN 1 D),ORAL, 25 MG BID (25 MG, 2 IN 1 D)
     Route: 048
     Dates: start: 20110330, end: 20110101
  2. SAVELLA [Suspect]
     Indication: FIBROMYALGIA
     Dosage: 12.5 MG BID (12.5 MG,2 IN 1 D),ORAL, 25 MG BID (25 MG, 2 IN 1 D)
     Route: 048
     Dates: start: 20110101, end: 20111030
  3. FORTEO [Suspect]
     Indication: OSTEOPOROSIS
     Dosage: 20 MCG (20 MCG, 1 IN 1 D),SUBCUTANEOUS
     Route: 058
     Dates: start: 20101228, end: 20111202
  4. LUNESTA (ESZOPICLONE) (ESZOPICLONE) [Concomitant]
  5. HYDROXYCHLOROQUINE (HYDROXYCHLOROQUINE) (HYDROXYCHLOROQUINE) [Concomitant]
  6. STATIN (NOS) (STATIN (NOS)) (STATIN (NOS) [Concomitant]
  7. SAVELLA [Suspect]
     Indication: FIBROMYALGIA
     Dosage: 50 MG (50 MG, 1 IN 1 D),ORAL
     Route: 048
     Dates: start: 20111031, end: 20111202

REACTIONS (11)
  - BLOOD PRESSURE INCREASED [None]
  - NAUSEA [None]
  - VISION BLURRED [None]
  - INTRACRANIAL ANEURYSM [None]
  - SUTURE RELATED COMPLICATION [None]
  - HYPERTENSION [None]
  - HEADACHE [None]
  - VOMITING [None]
  - PRURITUS [None]
  - VISUAL ACUITY REDUCED [None]
  - DIZZINESS [None]
